FAERS Safety Report 23654096 (Version 1)
Quarter: 2024Q1

REPORT INFORMATION
  Report Type: Spontaneous
  Country: US (occurrence: US)
  Receive Date: 20240320
  Receipt Date: 20240320
  Transmission Date: 20240409
  Serious: Yes (Other)
  Sender: FDA-Public Use
  Company Number: US-BRISTOL-MYERS SQUIBB COMPANY-2024-044359

PATIENT
  Age: 79 Year
  Sex: Male
  Weight: 114.3 kg

DRUGS (2)
  1. REVLIMID [Suspect]
     Active Substance: LENALIDOMIDE
     Indication: Plasma cell myeloma
     Dosage: ONE CAPSULE ON MON-WED-FRI
     Route: 048
     Dates: start: 20230202
  2. REVLIMID [Suspect]
     Active Substance: LENALIDOMIDE
     Dates: start: 20230525

REACTIONS (2)
  - Thrombosis [Recovering/Resolving]
  - Off label use [Unknown]

NARRATIVE: CASE EVENT DATE: 20240308
